FAERS Safety Report 8888116 (Version 1)
Quarter: 2012Q4

REPORT INFORMATION
  Report Type: 
  Country: BR (occurrence: BR)
  Receive Date: 20121106
  Receipt Date: 20121106
  Transmission Date: 20130627
  Serious: Yes (Other)
  Sender: FDA-Public Use
  Company Number: BR-PFIZER INC-2012276170

PATIENT
  Sex: Female

DRUGS (3)
  1. PRISTIQ [Suspect]
     Indication: FIBROMYALGIA
     Dosage: 1 tablet of 50 mg daily
     Route: 048
     Dates: start: 20121104, end: 20121105
  2. AMITRIL [Concomitant]
     Dosage: UNK
     Dates: start: 2007
  3. FRONTAL [Concomitant]
     Dosage: UNK
     Dates: start: 2009

REACTIONS (7)
  - Off label use [Unknown]
  - Crying [Recovered/Resolved]
  - Sedation [Recovered/Resolved]
  - Irritability [Recovered/Resolved]
  - Vision blurred [Recovered/Resolved]
  - Dizziness [Recovered/Resolved]
  - Abdominal pain upper [Not Recovered/Not Resolved]
